FAERS Safety Report 21259904 (Version 1)
Quarter: 2022Q3

REPORT INFORMATION
  Report Type: Spontaneous
  Country: US (occurrence: US)
  Receive Date: 20220826
  Receipt Date: 20220826
  Transmission Date: 20221026
  Serious: No
  Sender: FDA-Public Use
  Company Number: US-PFIZER INC-202201087504

PATIENT
  Sex: Female

DRUGS (2)
  1. TIKOSYN [Suspect]
     Active Substance: DOFETILIDE
     Dosage: UNK
  2. METOLAZONE [Suspect]
     Active Substance: METOLAZONE
     Dosage: UNK

REACTIONS (2)
  - Fluid retention [Unknown]
  - Contraindicated product prescribed [Unknown]
